FAERS Safety Report 14203733 (Version 2)
Quarter: 2018Q4

REPORT INFORMATION
  Report Type: Spontaneous
  Country: US (occurrence: US)
  Receive Date: 20171120
  Receipt Date: 20181009
  Transmission Date: 20190204
  Serious: No
  Sender: FDA-Public Use
  Company Number: US-PFIZER INC-2017496643

PATIENT
  Age: 60 Year
  Sex: Female
  Weight: 81 kg

DRUGS (4)
  1. ATORVASTATIN [Concomitant]
     Active Substance: ATORVASTATIN
     Dosage: 40 MG, UNK
     Dates: start: 2010
  2. AROMASIN [Suspect]
     Active Substance: EXEMESTANE
     Indication: BREAST CANCER RECURRENT
     Dosage: 25 MG, DAILY
     Route: 048
     Dates: start: 201706
  3. LOSARTAN. [Concomitant]
     Active Substance: LOSARTAN
     Dosage: 50 MG, UNK
     Dates: start: 2010
  4. METFORMIN [Concomitant]
     Active Substance: METFORMIN HYDROCHLORIDE
     Dosage: 2000 MG, UNK
     Dates: start: 1992

REACTIONS (2)
  - Benign breast neoplasm [Recovered/Resolved with Sequelae]
  - Scar [Unknown]

NARRATIVE: CASE EVENT DATE: 20171027
